FAERS Safety Report 15475726 (Version 4)
Quarter: 2018Q4

REPORT INFORMATION
  Report Type: Spontaneous
  Country: IT (occurrence: IT)
  Receive Date: 20181008
  Receipt Date: 20181026
  Transmission Date: 20190205
  Serious: Yes (Death, Hospitalization, Other)
  Sender: FDA-Public Use
  Company Number: IT-BEH-2018095390

PATIENT
  Age: 80 Year
  Sex: Male

DRUGS (7)
  1. AFSTYLA ANTIHEMOPHILIC FACTOR (RECOMBINANT), SINGLE CHAIN [Suspect]
     Active Substance: ANTIHEMOPHILIC FACTOR, HUMAN RECOMBINANT
     Indication: ORTHOPAEDIC PROCEDURE
     Dosage: UNK
     Route: 042
     Dates: start: 201808
  2. AFSTYLA ANTIHEMOPHILIC FACTOR (RECOMBINANT), SINGLE CHAIN [Suspect]
     Active Substance: ANTIHEMOPHILIC FACTOR, HUMAN RECOMBINANT
     Indication: INTERNAL FIXATION OF FRACTURE
     Dosage: 6000 IU, TOT (DAY 0)
     Route: 042
     Dates: start: 2018
  3. AFSTYLA ANTIHEMOPHILIC FACTOR (RECOMBINANT), SINGLE CHAIN [Suspect]
     Active Substance: ANTIHEMOPHILIC FACTOR, HUMAN RECOMBINANT
     Dosage: 2000 IU, QD (DAY +4 TO DAY +7)
     Route: 042
     Dates: start: 2018
  4. AFSTYLA ANTIHEMOPHILIC FACTOR (RECOMBINANT), SINGLE CHAIN [Suspect]
     Active Substance: ANTIHEMOPHILIC FACTOR, HUMAN RECOMBINANT
     Dosage: 4000 IU, QD (DAY +1 TO DAY +3)
     Route: 042
     Dates: start: 2018
  5. AFSTYLA ANTIHEMOPHILIC FACTOR (RECOMBINANT), SINGLE CHAIN [Suspect]
     Active Substance: ANTIHEMOPHILIC FACTOR, HUMAN RECOMBINANT
     Dosage: 2000 IU, QOD (ANY OTHER DAY FROM DAY +7 TO DAY 14)
     Route: 042
     Dates: start: 2018
  6. ASA [Concomitant]
     Active Substance: ASPIRIN
     Dosage: 100 MG, UNK
     Route: 065
  7. METFORMIN [Concomitant]
     Active Substance: METFORMIN HYDROCHLORIDE

REACTIONS (3)
  - Tongue haematoma [Fatal]
  - Haematoma [Fatal]
  - Anti factor VIII antibody positive [Unknown]

NARRATIVE: CASE EVENT DATE: 2018
